FAERS Safety Report 7290768-1 (Version None)
Quarter: 2011Q1

REPORT INFORMATION
  Report Type: 
  Country: None (occurrence: None)
  Receive Date: 20110214
  Receipt Date: 20110202
  Transmission Date: 20110831
  Serious: Yes (Death, Other)
  Sender: FDA-Public Use
  Company Number: JP-ROCHE-752877

PATIENT
  Age: 64 Year
  Sex: Male
  Weight: 51 kg

DRUGS (10)
  1. OXYCONTIN [Concomitant]
     Route: 048
     Dates: start: 20101208
  2. OXYCONTIN [Concomitant]
     Route: 048
     Dates: start: 20101110, end: 20101205
  3. CARBOPLATIN [Suspect]
     Route: 041
     Dates: start: 20101130, end: 20101130
  4. NOVAMIN [Concomitant]
     Route: 048
     Dates: start: 20101130, end: 20101203
  5. AVASTIN [Suspect]
     Indication: NON-SMALL CELL LUNG CANCER
     Route: 041
     Dates: start: 20101130, end: 20101130
  6. OXYCONTIN [Concomitant]
     Route: 048
     Dates: start: 20101206, end: 20101207
  7. OXYCONTIN [Concomitant]
     Route: 048
     Dates: start: 20101108, end: 20101109
  8. ALIMTA [Suspect]
     Dosage: DRUG NAME: ALIMTA (PEMETREXED SODIUM HYDRATE)
     Route: 041
     Dates: start: 20101130, end: 20101130
  9. GANATON [Concomitant]
     Dates: start: 20101130, end: 20101203
  10. PANVITAN [Concomitant]
     Route: 048
     Dates: start: 20101125

REACTIONS (12)
  - BLOOD UREA INCREASED [None]
  - CARDIO-RESPIRATORY ARREST [None]
  - WHITE BLOOD CELL COUNT DECREASED [None]
  - BONE MARROW FAILURE [None]
  - NEUTROPHIL COUNT DECREASED [None]
  - BLOOD PRESSURE DECREASED [None]
  - CONTUSION [None]
  - DISEASE PROGRESSION [None]
  - EPISTAXIS [None]
  - PLATELET COUNT DECREASED [None]
  - ANAEMIA [None]
  - FALL [None]
